FAERS Safety Report 6850500-X (Version None)
Quarter: 2010Q3

REPORT INFORMATION
  Report Type: 
  Country: None (occurrence: None)
  Receive Date: 20100716
  Receipt Date: 20071013
  Transmission Date: 20110219
  Serious: No
  Sender: FDA-Public Use
  Company Number: US-PFIZER INC-2007087424

PATIENT
  Sex: Male
  Weight: 81.8 kg

DRUGS (5)
  1. CHANTIX [Suspect]
     Indication: SMOKING CESSATION THERAPY
     Dates: start: 20071002
  2. HYZAAR [Concomitant]
     Indication: BLOOD PRESSURE
  3. PRAVASTATIN [Concomitant]
     Indication: BLOOD CHOLESTEROL
  4. ALPRAZOLAM [Concomitant]
     Indication: ANXIETY
  5. ACETYLSALICYLIC ACID [Concomitant]
     Indication: ANXIETY

REACTIONS (2)
  - FEELING ABNORMAL [None]
  - NAUSEA [None]
